FAERS Safety Report 20830511 (Version 1)
Quarter: 2022Q2

REPORT INFORMATION
  Report Type: Spontaneous
  Country: CA (occurrence: CA)
  Receive Date: 20220514
  Receipt Date: 20220514
  Transmission Date: 20220721
  Serious: Yes (Other)
  Sender: FDA-Public Use
  Company Number: CA-JNJFOC-20220522062

PATIENT
  Age: 23 Year
  Sex: Male
  Weight: 85 kg

DRUGS (1)
  1. REMICADE [Suspect]
     Active Substance: INFLIXIMAB
     Indication: Colitis ulcerative
     Route: 042

REACTIONS (6)
  - Adenoidal disorder [Unknown]
  - Weight increased [Unknown]
  - Peritonsillar abscess [Unknown]
  - Condition aggravated [Unknown]
  - Off label use [Unknown]
  - Product use issue [Unknown]
